FAERS Safety Report 25297784 (Version 1)
Quarter: 2025Q2

REPORT INFORMATION
  Report Type: Spontaneous
  Country: US (occurrence: US)
  Receive Date: 20250512
  Receipt Date: 20250512
  Transmission Date: 20250716
  Serious: No
  Sender: UCB
  Company Number: US-UCBSA-2024040873

PATIENT
  Sex: Male

DRUGS (1)
  1. CIMZIA [Suspect]
     Active Substance: CERTOLIZUMAB PEGOL
     Indication: Product used for unknown indication
     Dosage: UNK, EV 2 WEEKS(QOW)
     Dates: start: 20200801

REACTIONS (3)
  - Pain [Recovering/Resolving]
  - Product storage error [Unknown]
  - Product dose omission issue [Unknown]
